FAERS Safety Report 7628149-0 (Version None)
Quarter: 2011Q3

REPORT INFORMATION
  Report Type: 
  Country: None (occurrence: None)
  Receive Date: 20110720
  Receipt Date: 20110720
  Transmission Date: 20111222
  Serious: Yes (Death)
  Sender: FDA-Public Use
  Company Number: None

PATIENT
  Age: 70 Year
  Sex: Male
  Weight: 86.1834 kg

DRUGS (16)
  1. TEMAZEPAM [Concomitant]
  2. ASPIRIN [Concomitant]
  3. PRADAXA [Suspect]
     Indication: ATRIAL FIBRILLATION
     Dosage: 150 MG BID PO
     Route: 048
     Dates: start: 20110525
  4. LISINOPRIL [Concomitant]
  5. VITAMIN D [Concomitant]
  6. LORA TAB [Concomitant]
  7. PERIACTIN [Concomitant]
  8. METOPROLOL TARTRATE [Concomitant]
  9. CELEXA [Concomitant]
  10. MS CONTIN [Concomitant]
  11. FOSAMAX [Concomitant]
  12. PEPCID [Concomitant]
  13. CRESTOR [Concomitant]
  14. CYANOCOBALAMIN [Concomitant]
  15. AMIODARONE HCL [Concomitant]
  16. DOCUSATE SATIVA [Concomitant]

REACTIONS (4)
  - COAGULOPATHY [None]
  - RESPIRATORY FAILURE [None]
  - HYPOTENSION [None]
  - SEPSIS [None]
